FAERS Safety Report 20308250 (Version 3)
Quarter: 2022Q2

REPORT INFORMATION
  Report Type: Report from Study
  Country: US (occurrence: US)
  Receive Date: 20220107
  Receipt Date: 20220408
  Transmission Date: 20220721
  Serious: No
  Sender: FDA-Public Use
  Company Number: US-NOVARTISTESTPH-NVSC2022US002411

PATIENT
  Age: 57 Year
  Sex: Female

DRUGS (1)
  1. KESIMPTA [Suspect]
     Active Substance: OFATUMUMAB
     Indication: Multiple sclerosis
     Dosage: 20 MG
     Route: 065

REACTIONS (5)
  - COVID-19 [Unknown]
  - Throat irritation [Unknown]
  - Gait disturbance [Unknown]
  - Asthenia [Unknown]
  - Cough [Unknown]

NARRATIVE: CASE EVENT DATE: 20211224
